FAERS Safety Report 10603219 (Version 2)
Quarter: 2014Q4

REPORT INFORMATION
  Report Type: Spontaneous
  Country: JP (occurrence: JP)
  Receive Date: 20141124
  Receipt Date: 20141124
  Transmission Date: 20150529
  Serious: Yes (Death)
  Sender: FDA-Public Use
  Company Number: JP-PFIZER INC-2014304191

PATIENT
  Age: 86 Year
  Sex: Male

DRUGS (2)
  1. ZYVOX [Suspect]
     Active Substance: LINEZOLID
     Indication: INFECTION
     Dosage: UNK
     Route: 041
  2. ZYVOX [Suspect]
     Active Substance: LINEZOLID
     Indication: PYREXIA

REACTIONS (1)
  - Clostridium difficile infection [Fatal]
